FAERS Safety Report 15622640 (Version 4)
Quarter: 2019Q3

REPORT INFORMATION
  Report Type: Report from Study
  Country: BR (occurrence: BR)
  Receive Date: 20181115
  Receipt Date: 20190726
  Transmission Date: 20191004
  Serious: Yes (Hospitalization, Other)
  Sender: FDA-Public Use
  Company Number: BR-TAKEDA-2018TUS026076

PATIENT
  Age: 47 Year
  Sex: Female

DRUGS (4)
  1. IMOSEC [Concomitant]
     Active Substance: LOPERAMIDE
     Indication: CROHN^S DISEASE
  2. VEDOLIZUMAB [Suspect]
     Active Substance: VEDOLIZUMAB
     Indication: CROHN^S DISEASE
     Dosage: 300 MILLIGRAM
     Route: 042
     Dates: start: 20180705
  3. IMOSEC [Concomitant]
     Active Substance: LOPERAMIDE
     Indication: DEHYDRATION
     Dosage: UNK UNK, QD
  4. ATENOLOL. [Concomitant]
     Active Substance: ATENOLOL
     Indication: ARRHYTHMIA
     Dosage: UNK

REACTIONS (19)
  - Tachycardia [Recovered/Resolved]
  - Anaemia [Recovered/Resolved]
  - Haemoglobin decreased [Recovered/Resolved]
  - Urinary tract infection [Recovered/Resolved]
  - Surgery [Recovered/Resolved]
  - Vision blurred [Recovered/Resolved]
  - Adverse event [Recovered/Resolved]
  - Ascites [Recovered/Resolved]
  - Intestinal fistula [Recovered/Resolved]
  - Mineral deficiency [Recovering/Resolving]
  - Malaise [Not Recovered/Not Resolved]
  - Crohn^s disease [Recovered/Resolved]
  - Menstrual disorder [Recovered/Resolved]
  - Weight decreased [Recovered/Resolved]
  - Dehydration [Recovered/Resolved]
  - Gastrointestinal infection [Recovered/Resolved]
  - Asthenia [Recovered/Resolved]
  - Malnutrition [Recovering/Resolving]
  - Muscle spasms [Recovered/Resolved]

NARRATIVE: CASE EVENT DATE: 2018
